FAERS Safety Report 7815968-0 (Version None)
Quarter: 2011Q4

REPORT INFORMATION
  Report Type: 
  Country: None (occurrence: None)
  Receive Date: 20111014
  Receipt Date: 20111005
  Transmission Date: 20120403
  Serious: Yes (Other)
  Sender: FDA-Public Use
  Company Number: US-MERCK-1107USA01371

PATIENT
  Age: 72 Year
  Sex: Female

DRUGS (6)
  1. FOSAMAX [Suspect]
     Route: 048
     Dates: start: 20070801, end: 20080801
  2. FOSAMAX [Suspect]
     Route: 048
     Dates: start: 20000501
  3. VITAMIN E [Concomitant]
     Route: 065
  4. CYANOCOBALAMIN [Concomitant]
     Route: 065
  5. CALCIUM (UNSPECIFIED) [Concomitant]
     Route: 065
  6. VITAMIN D (UNSPECIFIED) [Concomitant]
     Route: 065

REACTIONS (10)
  - OSTEOPOROSIS [None]
  - GALLBLADDER DISORDER [None]
  - ATRIAL FIBRILLATION [None]
  - SCAPULA FRACTURE [None]
  - HERNIA [None]
  - HYPERTENSION [None]
  - TOOTH DISORDER [None]
  - FEMUR FRACTURE [None]
  - FALL [None]
  - INSOMNIA [None]
